FAERS Safety Report 18402400 (Version 2)
Quarter: 2020Q4

REPORT INFORMATION
  Report Type: Spontaneous
  Country: AT (occurrence: AT)
  Receive Date: 20201020
  Receipt Date: 20201029
  Transmission Date: 20210114
  Serious: Yes (Life-Threatening, Hospitalization, Disabling, Other)
  Sender: FDA-Public Use
  Company Number: AT-LUPIN PHARMACEUTICALS INC.-2020-07431

PATIENT
  Age: 44 Year
  Sex: Female

DRUGS (4)
  1. TRIAMCINOLONE [Suspect]
     Active Substance: TRIAMCINOLONE
     Indication: RADICULAR PAIN
     Dosage: 10 MILLIGRAM,10 MG (1 ML),SUSPENSION
     Route: 065
  2. BUCAIN [Concomitant]
     Indication: RADICULAR PAIN
     Route: 065
  3. XYLANAEST [Concomitant]
     Active Substance: LIDOCAINE HYDROCHLORIDE
     Indication: LOCAL ANAESTHESIA
     Dosage: LIDOCAINE WAS ADMINISTERED IN THE POSTERIOR AREA OF THE NEUROFORAMEN ALONG THE INTERVERTEBRAL JOINT
     Route: 065
  4. IOMERON [Concomitant]
     Active Substance: IOMEPROL
     Indication: SCAN WITH CONTRAST
     Dosage: 1 MILLILITER
     Route: 065

REACTIONS (6)
  - Condition aggravated [Recovered/Resolved]
  - Respiratory distress [Recovered/Resolved]
  - Anal incontinence [Not Recovered/Not Resolved]
  - Quadriparesis [Not Recovered/Not Resolved]
  - Urinary incontinence [Not Recovered/Not Resolved]
  - Spinal cord infarction [Recovering/Resolving]
